FAERS Safety Report 6973062-5 (Version None)
Quarter: 2010Q3

REPORT INFORMATION
  Report Type: 
  Country: None (occurrence: None)
  Receive Date: 20100909
  Receipt Date: 20100907
  Transmission Date: 20110219
  Serious: Yes (Other)
  Sender: FDA-Public Use
  Company Number: US-BRISTOL-MYERS SQUIBB COMPANY-15274921

PATIENT
  Age: 93 Year
  Sex: Female

DRUGS (3)
  1. ABILIFY [Suspect]
     Indication: INSOMNIA
     Dosage: SPLIT THE 2MG TABLETS IN HALF
  2. AMITRIPTYLINE HCL [Concomitant]
  3. LISINOPRIL AND HYDROCHLOROTHIAZIDE [Concomitant]

REACTIONS (1)
  - BALANCE DISORDER [None]
